FAERS Safety Report 23145131 (Version 1)
Quarter: 2023Q4

REPORT INFORMATION
  Report Type: Spontaneous
  Country: CN (occurrence: CN)
  Receive Date: 20231103
  Receipt Date: 20231103
  Transmission Date: 20240110
  Serious: Yes (Life-Threatening)
  Sender: FDA-Public Use
  Company Number: CN-GE HEALTHCARE-2023CSU009755

PATIENT
  Age: 55 Year
  Sex: Male

DRUGS (3)
  1. OMNIPAQUE [Suspect]
     Active Substance: IOHEXOL
     Indication: Angiogram cerebral
     Dosage: 50 ML, SINGLE
     Route: 013
  2. OMNIPAQUE [Suspect]
     Active Substance: IOHEXOL
     Indication: Dysarthria
  3. OMNIPAQUE [Suspect]
     Active Substance: IOHEXOL
     Indication: Muscular weakness

REACTIONS (1)
  - Posterior reversible encephalopathy syndrome [Recovered/Resolved]
